FAERS Safety Report 11844009 (Version 1)
Quarter: 2015Q4

REPORT INFORMATION
  Report Type: Spontaneous
  Country: US (occurrence: US)
  Receive Date: 20151217
  Receipt Date: 20151217
  Transmission Date: 20160305
  Serious: No
  Sender: FDA-Public Use
  Company Number: US-ASTRAZENECA-2015SF24059

PATIENT
  Age: 3886 Week
  Sex: Female

DRUGS (1)
  1. TUDORZA PRESSAIR [Suspect]
     Active Substance: ACLIDINIUM BROMIDE
     Dosage: 400MCG ONE PUFF TWICE DAILY
     Route: 055
     Dates: start: 2014

REACTIONS (4)
  - Dysphonia [Unknown]
  - Device malfunction [Unknown]
  - Stress [Unknown]
  - Intentional device misuse [Unknown]

NARRATIVE: CASE EVENT DATE: 20151206
